FAERS Safety Report 24769349 (Version 1)
Quarter: 2024Q4

REPORT INFORMATION
  Report Type: Spontaneous
  Country: FR (occurrence: FR)
  Receive Date: 20241224
  Receipt Date: 20241224
  Transmission Date: 20250115
  Serious: Yes (Other)
  Sender: JAZZ
  Company Number: FR-JAZZ PHARMACEUTICALS-2024-FR-024034

PATIENT

DRUGS (1)
  1. CANNABIDIOL [Suspect]
     Active Substance: CANNABIDIOL
     Indication: Severe myoclonic epilepsy of infancy
     Dosage: 280 MILLIGRAM, BID
     Route: 048
     Dates: start: 20230609

REACTIONS (1)
  - Autism spectrum disorder [Recovering/Resolving]

NARRATIVE: CASE EVENT DATE: 20240301
